FAERS Safety Report 14015354 (Version 3)
Quarter: 2017Q4

REPORT INFORMATION
  Report Type: Spontaneous
  Country: US (occurrence: US)
  Receive Date: 20170927
  Receipt Date: 20171205
  Transmission Date: 20180321
  Serious: No
  Sender: FDA-Public Use
  Company Number: US-BRISTOL-MYERS SQUIBB COMPANY-BMS-2017-085566

PATIENT
  Age: 80 Year
  Sex: Female
  Weight: 74.83 kg

DRUGS (6)
  1. KENALOG-40 [Suspect]
     Active Substance: TRIAMCINOLONE ACETONIDE
     Indication: DIABETIC RETINAL OEDEMA
     Dosage: 2 MG, UNK
     Route: 050
     Dates: start: 20170905, end: 20170905
  2. LIDOCAINE. [Concomitant]
     Active Substance: LIDOCAINE
     Indication: ANAESTHESIA
     Dosage: 1 DF, UNK
     Route: 048
  3. CIPROFLOXACIN. [Concomitant]
     Active Substance: CIPROFLOXACIN
     Indication: PRODUCT USED FOR UNKNOWN INDICATION
     Route: 065
  4. BETADINE [Concomitant]
     Active Substance: POVIDONE-IODINE
     Indication: PRODUCT USED FOR UNKNOWN INDICATION
     Dosage: UNK
     Route: 048
     Dates: start: 20170905, end: 20170905
  5. PROPARACAINE                       /00143101/ [Concomitant]
     Indication: ANAESTHESIA
     Dosage: UNK
     Route: 048
     Dates: start: 20170905, end: 20170905
  6. TETRACAINE. [Concomitant]
     Active Substance: TETRACAINE
     Indication: ANAESTHESIA
     Dosage: UNK
     Route: 048
     Dates: start: 20170905, end: 20170905

REACTIONS (5)
  - Product use issue [Unknown]
  - Product use in unapproved indication [Unknown]
  - Visual impairment [Recovered/Resolved]
  - Inflammation [Recovered/Resolved]
  - Infection [Recovering/Resolving]

NARRATIVE: CASE EVENT DATE: 20170907
